FAERS Safety Report 5871291-5 (Version None)
Quarter: 2008Q3

REPORT INFORMATION
  Report Type: 
  Country: None (occurrence: None)
  Receive Date: 20080905
  Receipt Date: 20080827
  Transmission Date: 20090109
  Serious: Yes (Hospitalization)
  Sender: FDA-Public Use
  Company Number: DE-WYE-G02064408

PATIENT
  Sex: Female
  Weight: 72 kg

DRUGS (2)
  1. TREVILOR [Suspect]
     Indication: PANIC DISORDER
     Route: 048
     Dates: start: 20080718, end: 20080718
  2. TRIMIPRAMINE MALEATE [Concomitant]
     Indication: PANIC DISORDER
     Route: 048
     Dates: start: 20071001

REACTIONS (4)
  - NAUSEA [None]
  - SENSORY DISTURBANCE [None]
  - TACHYCARDIA [None]
  - VOMITING [None]
